FAERS Safety Report 8319462-2 (Version None)
Quarter: 2012Q2

REPORT INFORMATION
  Report Type: 
  Country: None (occurrence: None)
  Receive Date: 20120426
  Receipt Date: 20120426
  Transmission Date: 20120825
  Serious: Yes (Hospitalization)
  Sender: FDA-Public Use
  Company Number: None

PATIENT
  Age: 40 Year
  Sex: Female

DRUGS (18)
  1. ASPIRIN [Concomitant]
  2. RENAGEL [Concomitant]
  3. DEPAKOTE [Concomitant]
  4. RENVELA [Concomitant]
  5. EPOGEN [Concomitant]
  6. DEPAKOTE [Concomitant]
  7. MEDROXYPROGESTERONE [Concomitant]
  8. CLONIDINE [Concomitant]
  9. INDERAL LA [Concomitant]
  10. HECTOROL [Suspect]
     Dosage: 1.0 MCG 3X QW 3.0 MCG 3X QW 6.0 MCG 3X QW 8.0 MCG 3X QW 6.0 MCG 3X QW 4.5 MCG 3X QW
     Dates: start: 20111217, end: 20111229
  11. HECTOROL [Suspect]
     Dosage: 1.0 MCG 3X QW 3.0 MCG 3X QW 6.0 MCG 3X QW 8.0 MCG 3X QW 6.0 MCG 3X QW 4.5 MCG 3X QW
     Dates: start: 20111229, end: 20120126
  12. HECTOROL [Suspect]
     Dosage: 1.0 MCG 3X QW 3.0 MCG 3X QW 6.0 MCG 3X QW 8.0 MCG 3X QW 6.0 MCG 3X QW 4.5 MCG 3X QW
     Dates: start: 20110609, end: 20110803
  13. HECTOROL [Suspect]
     Dosage: 1.0 MCG 3X QW 3.0 MCG 3X QW 6.0 MCG 3X QW 8.0 MCG 3X QW 6.0 MCG 3X QW 4.5 MCG 3X QW
     Dates: start: 20111110, end: 20111216
  14. HECTOROL [Suspect]
     Dosage: 1.0 MCG 3X QW 3.0 MCG 3X QW 6.0 MCG 3X QW 8.0 MCG 3X QW 6.0 MCG 3X QW 4.5 MCG 3X QW
     Dates: start: 20110804, end: 20111109
  15. HECTOROL [Suspect]
     Dosage: 1.0 MCG 3X QW 3.0 MCG 3X QW 6.0 MCG 3X QW 8.0 MCG 3X QW 6.0 MCG 3X QW 4.5 MCG 3X QW
     Dates: start: 20110405, end: 20110608
  16. NORVASC [Concomitant]
  17. AVAPRO [Concomitant]
  18. SENSIPAR [Concomitant]

REACTIONS (2)
  - AMYLASE INCREASED [None]
  - BLOOD ALBUMIN DECREASED [None]
